FAERS Safety Report 7740630-2 (Version None)
Quarter: 2011Q3

REPORT INFORMATION
  Report Type: 
  Country: None (occurrence: None)
  Receive Date: 20110909
  Receipt Date: 20110901
  Transmission Date: 20111222
  Serious: Yes (Hospitalization, Other)
  Sender: FDA-Public Use
  Company Number: JP-B.I. PHARMACEUTICALS,INC./RIDGEFIELD-2011-BP-20840NB

PATIENT
  Age: 85 Year
  Sex: Female

DRUGS (5)
  1. ASPIRIN [Suspect]
     Indication: MYOCARDIAL ISCHAEMIA
     Dosage: 100 MG
     Route: 048
     Dates: start: 20110720, end: 20110724
  2. LOSARTAN POTASSIUM [Concomitant]
     Indication: HYPERTENSION
     Dosage: 25 MG
     Route: 048
     Dates: start: 20110720
  3. PRADAXA [Suspect]
     Indication: THROMBOSIS PROPHYLAXIS
     Dosage: 220 MG
     Route: 048
     Dates: start: 20110721, end: 20110724
  4. ARICEPT [Concomitant]
     Indication: DEMENTIA ALZHEIMER'S TYPE
     Dosage: 5 MG
     Route: 048
     Dates: start: 20110720
  5. RABEPRAZOLE SODIUM [Concomitant]
     Indication: GASTRITIS
     Dosage: 10 MG
     Route: 048
     Dates: start: 20110720

REACTIONS (2)
  - LARGE INTESTINAL HAEMORRHAGE [None]
  - LARGE INTESTINE CARCINOMA [None]
